FAERS Safety Report 10022644 (Version 1)
Quarter: 2014Q1

REPORT INFORMATION
  Report Type: Spontaneous
  Country: US (occurrence: US)
  Receive Date: 20140319
  Receipt Date: 20140319
  Transmission Date: 20141002
  Serious: No
  Sender: FDA-Public Use
  Company Number: US-TEVA-466102USA

PATIENT
  Age: 38 Year
  Sex: Female
  Weight: 65.83 kg

DRUGS (2)
  1. NUVIGIL [Suspect]
     Indication: NARCOLEPSY
     Dates: start: 20140224, end: 20140224
  2. NUVIGIL [Suspect]
     Indication: MULTIPLE SCLEROSIS
     Dosage: 2/3 OF A 250 MILLIGRAM TABLET
     Dates: start: 20140225

REACTIONS (4)
  - Drug effect increased [Not Recovered/Not Resolved]
  - Psychomotor hyperactivity [Not Recovered/Not Resolved]
  - Headache [Not Recovered/Not Resolved]
  - Incorrect dose administered [Unknown]
